FAERS Safety Report 9184476 (Version 1)
Quarter: 2012Q4

REPORT INFORMATION
  Report Type: 
  Country: US (occurrence: US)
  Receive Date: 20121101
  Receipt Date: 20121101
  Transmission Date: 20130627
  Serious: Yes (Other)
  Sender: FDA-Public Use
  Company Number: US-PFIZER INC-2012271007

PATIENT
  Age: 70 Year
  Sex: Male
  Weight: 135 kg

DRUGS (6)
  1. LYRICA [Suspect]
     Indication: NERVE PAIN
     Dosage: 300 mg, 2x/day
     Route: 048
     Dates: start: 201209, end: 2012
  2. RANITIDINE [Concomitant]
     Dosage: UNK
  3. LEVOTHYROXINE [Concomitant]
     Indication: THYROID DISORDER
     Dosage: UNK
  4. HYDROCODONE [Concomitant]
     Indication: ARTHROPATHY
     Dosage: UNK
  5. ALPRAZOLAM [Concomitant]
     Dosage: 1 mg, UNK
  6. TAMSULOSIN [Concomitant]
     Dosage: UNK

REACTIONS (4)
  - Dissociation [Recovered/Resolved]
  - Confusional state [Recovered/Resolved]
  - Mood altered [Recovered/Resolved]
  - Feeling abnormal [Recovered/Resolved]
